FAERS Safety Report 18139027 (Version 1)
Quarter: 2020Q3

REPORT INFORMATION
  Report Type: Spontaneous
  Country: US (occurrence: US)
  Receive Date: 20200812
  Receipt Date: 20200812
  Transmission Date: 20201103
  Serious: Yes (Hospitalization, Other)
  Sender: FDA-Public Use
  Company Number: US-AMGEN-USASP2020127769

PATIENT
  Age: 52 Year
  Sex: Male

DRUGS (4)
  1. PEGFILGRASTIM [Suspect]
     Active Substance: PEGFILGRASTIM
     Indication: PROPHYLAXIS
     Dosage: UNK
     Route: 065
  2. CARBOPLATIN. [Concomitant]
     Active Substance: CARBOPLATIN
     Indication: NASAL SINUS CANCER
     Dosage: UNK
  3. 5?FU [FLUOROURACIL] [Concomitant]
     Active Substance: FLUOROURACIL
     Indication: NASAL SINUS CANCER
  4. DOCETAXEL. [Concomitant]
     Active Substance: DOCETAXEL
     Indication: NASAL SINUS CANCER
     Dosage: UNK

REACTIONS (4)
  - Hypercoagulation [Unknown]
  - Arterial thrombosis [Unknown]
  - Deep vein thrombosis [Unknown]
  - Therapeutic product effect incomplete [Unknown]
